FAERS Safety Report 7552850-0 (Version None)
Quarter: 2011Q2

REPORT INFORMATION
  Report Type: 
  Country: None (occurrence: None)
  Receive Date: 20110616
  Receipt Date: 20110609
  Transmission Date: 20111010
  Serious: Yes (Other)
  Sender: FDA-Public Use
  Company Number: US-GILEAD-2011-0040347

PATIENT
  Age: 34 Year
  Sex: Female

DRUGS (3)
  1. NORVIR [Concomitant]
     Indication: HIV INFECTION
     Route: 048
  2. PREZISTA [Concomitant]
     Indication: HIV INFECTION
     Route: 048
  3. TRUVADA [Suspect]
     Indication: HIV INFECTION
     Route: 048

REACTIONS (2)
  - TWIN PREGNANCY [None]
  - ABORTION SPONTANEOUS [None]
